FAERS Safety Report 9285333 (Version 1)
Quarter: 2013Q2

REPORT INFORMATION
  Report Type: Spontaneous
  Country: US (occurrence: US)
  Receive Date: 20130513
  Receipt Date: 20130513
  Transmission Date: 20140414
  Serious: Yes (Death, Other)
  Sender: FDA-Public Use
  Company Number: US-BRISTOL-MYERS SQUIBB COMPANY-18857466

PATIENT
  Age: 81 Year
  Sex: Female

DRUGS (1)
  1. YERVOY [Suspect]

REACTIONS (2)
  - Death [Fatal]
  - Renal failure [Unknown]
